FAERS Safety Report 23346687 (Version 1)
Quarter: 2023Q4

REPORT INFORMATION
  Report Type: Spontaneous
  Country: US (occurrence: None)
  Receive Date: 20231227
  Receipt Date: 20231227
  Transmission Date: 20240110
  Serious: No
  Sender: FDA-Public Use
  Company Number: None

PATIENT
  Age: 57 Year
  Sex: Female

DRUGS (1)
  1. RINVOQ [Suspect]
     Active Substance: UPADACITINIB
     Indication: Rheumatoid arthritis
     Dosage: TAKE 1 TABLET BY MOUTH DAILY AS DIRECTED?
     Route: 048
     Dates: start: 202305

REACTIONS (6)
  - Ear haemorrhage [None]
  - Ear pruritus [None]
  - Bacterial infection [None]
  - Viral infection [None]
  - Influenza [None]
  - Therapy interrupted [None]
